FAERS Safety Report 14984676 (Version 2)
Quarter: 2019Q3

REPORT INFORMATION
  Report Type: Report from Study
  Country: FR (occurrence: FR)
  Receive Date: 20180607
  Receipt Date: 20190906
  Transmission Date: 20191004
  Serious: Yes (Death, Other)
  Sender: FDA-Public Use
  Company Number: FR-SEATTLE GENETICS-2016SGN01106

PATIENT
  Age: 70 Year
  Sex: Female
  Weight: 83 kg

DRUGS (9)
  1. BRENTUXIMAB VEDOTIN-MPI [Suspect]
     Active Substance: BRENTUXIMAB VEDOTIN
     Dosage: 131 MG, UNK
     Route: 042
     Dates: start: 20160627
  2. SULFAMETHOXAZOLE [Concomitant]
     Active Substance: SULFAMETHOXAZOLE
     Indication: ANTIBIOTIC PROPHYLAXIS
     Dosage: UNK, TID
     Route: 048
     Dates: start: 20160426, end: 20160517
  3. BRENTUXIMAB VEDOTIN-MPI [Suspect]
     Active Substance: BRENTUXIMAB VEDOTIN
     Dosage: 140 MG, UNK
     Route: 042
     Dates: start: 20160516
  4. BRENTUXIMAB VEDOTIN-MPI [Suspect]
     Active Substance: BRENTUXIMAB VEDOTIN
     Dosage: 131 MG, UNK
     Route: 042
     Dates: start: 20160606
  5. FUROSEMIDE. [Concomitant]
     Active Substance: FUROSEMIDE
     Indication: DIURETIC THERAPY
     Dosage: UNK, QD
     Route: 042
     Dates: start: 20160428, end: 20160503
  6. TINZAPARIN [Concomitant]
     Active Substance: TINZAPARIN
     Indication: DEEP VEIN THROMBOSIS
     Dosage: UNK UNK, QD
     Route: 058
     Dates: start: 20160426
  7. CEFTRIAXONE. [Concomitant]
     Active Substance: CEFTRIAXONE
     Indication: PYELONEPHRITIS ACUTE
     Dosage: UNK, QD
     Route: 042
     Dates: start: 20160429, end: 20160514
  8. ATOVAQUONE. [Concomitant]
     Active Substance: ATOVAQUONE
     Indication: PNEUMOCYSTIS JIROVECII PNEUMONIA
     Dosage: UNK, BID
     Route: 048
     Dates: start: 20160428, end: 20160513
  9. BRENTUXIMAB VEDOTIN-MPI [Suspect]
     Active Substance: BRENTUXIMAB VEDOTIN
     Indication: LYMPHOMA
     Dosage: 149 MG, UNK
     Route: 042
     Dates: start: 20160425, end: 20160826

REACTIONS (8)
  - Dyspnoea [Recovering/Resolving]
  - Pyelonephritis acute [Recovered/Resolved]
  - Hodgkin^s disease [Fatal]
  - Weight decreased [Unknown]
  - Deep vein thrombosis [Recovering/Resolving]
  - Off label use [Unknown]
  - Cognitive disorder [Not Recovered/Not Resolved]
  - Pneumocystis jirovecii pneumonia [Recovered/Resolved]

NARRATIVE: CASE EVENT DATE: 20160331
